FAERS Safety Report 8933671 (Version 2)
Quarter: 2012Q4

REPORT INFORMATION
  Report Type: 
  Country: US (occurrence: US)
  Receive Date: 20121129
  Receipt Date: 20121226
  Transmission Date: 20130627
  Serious: Yes (Other)
  Sender: FDA-Public Use
  Company Number: PHEH2012US023237

PATIENT
  Sex: Male
  Weight: 74.7 kg

DRUGS (13)
  1. EXJADE [Suspect]
     Indication: IRON OVERLOAD
     Dosage: 200 mg, QD
     Route: 048
  2. EXJADE [Suspect]
     Indication: MYELODYSPLASTIC SYNDROME
     Dosage: 2000mg daily
  3. SALBUTAMOL [Concomitant]
     Dosage: UNK, PRN
  4. TUSSIONEX [Concomitant]
     Indication: COUGH
  5. FLOVENT [Concomitant]
  6. ACCOMIN MULTIVITAMIN [Concomitant]
  7. RANITIDINE HYDROCHLORIDE [Concomitant]
  8. PREDNISONE [Concomitant]
     Indication: INFLAMMATION
  9. SEPTRA [Concomitant]
  10. ALBUTEROL//SALBUTAMOL [Concomitant]
  11. PREDNISOLONE [Concomitant]
     Dosage: 60 mg for 1 month
  12. PREDNISOLONE [Concomitant]
     Dosage: 40 mg, UNK
  13. BLOOD TRANSFUSION, AUXILIARY PRODUCTS [Concomitant]

REACTIONS (9)
  - Interstitial lung disease [Not Recovered/Not Resolved]
  - Pulmonary oedema [Not Recovered/Not Resolved]
  - Cough [Not Recovered/Not Resolved]
  - Dyspnoea [Not Recovered/Not Resolved]
  - Fatigue [Unknown]
  - Cardiac murmur [Unknown]
  - Blood pressure systolic increased [Unknown]
  - Blood pressure diastolic decreased [Unknown]
  - Weight decreased [Unknown]
